FAERS Safety Report 5639598-4 (Version None)
Quarter: 2008Q1

REPORT INFORMATION
  Report Type: 
  Country: None (occurrence: None)
  Receive Date: 20080131
  Receipt Date: 20071106
  Transmission Date: 20080703
  Serious: Yes (Other)
  Sender: FDA-Public Use
  Company Number: 163-21880-07110444

PATIENT
  Age: 81 Year
  Sex: Male

DRUGS (5)
  1. REVLIMID [Suspect]
     Indication: MYELODYSPLASTIC SYNDROME
     Dosage: 5 MG DAILY ORAL
     Route: 048
     Dates: start: 20070912, end: 20070927
  2. PROCRIT [Concomitant]
  3. HYTRIN [Concomitant]
  4. BLOOD TRANSFUSIONS (BLOOD TRANSFUSION, AUXILIARY PRODUCTS) [Concomitant]
  5. AUGMENTIN '125' [Concomitant]

REACTIONS (9)
  - ASTHENIA [None]
  - COUGH [None]
  - CULTURE URINE POSITIVE [None]
  - DYSPNOEA [None]
  - HEART RATE [None]
  - HEART RATE INCREASED [None]
  - HYPERVENTILATION [None]
  - MYOCARDIAL INFARCTION [None]
  - PYREXIA [None]
